FAERS Safety Report 7862566-9 (Version None)
Quarter: 2011Q4

REPORT INFORMATION
  Report Type: 
  Country: None (occurrence: None)
  Receive Date: 20111026
  Receipt Date: 20111013
  Transmission Date: 20120403
  Serious: Yes (Other)
  Sender: FDA-Public Use
  Company Number: 1000024891

PATIENT
  Age: 62 Year
  Sex: Female

DRUGS (4)
  1. ROFLUMILAST (ROFLUMILAST) (500 MICROGRAM, TABLETS) [Suspect]
     Indication: CHRONIC OBSTRUCTIVE PULMONARY DISEASE
     Dosage: 500 MCG (500 MCG, 1 IN 1 D), ORAL
     Route: 048
     Dates: start: 20110401
  2. SYMBICORT (BUDESONIDE, FORMOTEROL SUMARATE) [Concomitant]
  3. SPIRIVA [Concomitant]
  4. BERODUAL (IPRATROPIUM, FENOTEROL) [Concomitant]

REACTIONS (3)
  - NEOPLASM PROGRESSION [None]
  - BREAST CANCER [None]
  - BREAST DISORDER FEMALE [None]
